FAERS Safety Report 16530697 (Version 2)
Quarter: 2019Q4

REPORT INFORMATION
  Report Type: Report from Study
  Country: None (occurrence: US)
  Receive Date: 20190704
  Receipt Date: 20191226
  Transmission Date: 20200122
  Serious: Yes (Other)
  Sender: FDA-Public Use
  Company Number: US-ABBVIE-19K-163-2794807-00

PATIENT
  Age: 50 Year
  Sex: Male

DRUGS (1)
  1. HUMIRA [Suspect]
     Active Substance: ADALIMUMAB
     Indication: CROHN^S DISEASE
     Route: 058

REACTIONS (5)
  - Procedural failure [Unknown]
  - Arthritis [Unknown]
  - Knee arthroplasty [Unknown]
  - Chondrocalcinosis pyrophosphate [Unknown]
  - Arthralgia [Unknown]

NARRATIVE: CASE EVENT DATE: 20190709
